FAERS Safety Report 9337739 (Version 1)
Quarter: 2013Q2

REPORT INFORMATION
  Report Type: Spontaneous
  Country: IT (occurrence: IT)
  Receive Date: 20130607
  Receipt Date: 20130607
  Transmission Date: 20140414
  Serious: Yes (Hospitalization)
  Sender: FDA-Public Use
  Company Number: IT-ASTRAZENECA-2013SE38453

PATIENT
  Age: 74 Year
  Sex: Male

DRUGS (11)
  1. BRILIQUE [Suspect]
     Indication: ACUTE CORONARY SYNDROME
     Route: 048
     Dates: start: 20130430, end: 20130523
  2. TIOTROPIUM BROMIDE [Concomitant]
     Indication: CHRONIC OBSTRUCTIVE PULMONARY DISEASE
     Route: 055
  3. VERAPAMIL [Concomitant]
     Indication: HYPERTENSION
     Route: 048
  4. ATORVASTATIN [Concomitant]
     Indication: ACUTE CORONARY SYNDROME
     Route: 048
     Dates: start: 20130430, end: 20130523
  5. PERINDOPRIL ARGININE [Concomitant]
     Indication: HYPERTENSION
     Route: 048
  6. ISOSORBIDE DINITRATE [Concomitant]
     Indication: ACUTE CORONARY SYNDROME
     Route: 060
  7. PANTOPRAZOLE [Concomitant]
     Indication: GASTRITIS PROPHYLAXIS
     Route: 048
  8. METHYLPREDNISOLONE [Concomitant]
     Route: 048
  9. LORAZEPAM [Concomitant]
     Route: 048
  10. CARDIOASPIRIN (ACETYL SALICYLIC ACID) [Concomitant]
     Indication: ACUTE CORONARY SYNDROME
     Route: 048
     Dates: start: 20130430, end: 20130523
  11. SYMBICORT [Concomitant]
     Indication: CHRONIC OBSTRUCTIVE PULMONARY DISEASE
     Dosage: 320/9MICROGRAMS INHALER, 2 DF, OF UNKNOWN FREQUENCY
     Route: 055

REACTIONS (1)
  - Melaena [Recovering/Resolving]
